FAERS Safety Report 5373817-7 (Version None)
Quarter: 2007Q2

REPORT INFORMATION
  Report Type: 
  Country: None (occurrence: None)
  Receive Date: 20070628
  Receipt Date: 20070618
  Transmission Date: 20071010
  Serious: Yes (Other)
  Sender: FDA-Public Use
  Company Number: DE-PFIZER INC-2007050501

PATIENT
  Sex: Female

DRUGS (3)
  1. LYRICA [Suspect]
     Indication: EPILEPSY
     Route: 048
  2. ACETYLSALICYLIC ACID SRT [Concomitant]
  3. HEPARIN [Concomitant]

REACTIONS (6)
  - ADVERSE DRUG REACTION [None]
  - ASTHENIA [None]
  - EYE MOVEMENT DISORDER [None]
  - HYPOGLYCAEMIA [None]
  - RESTLESSNESS [None]
  - TACHYCARDIA [None]
